FAERS Safety Report 7970294-4 (Version None)
Quarter: 2011Q4

REPORT INFORMATION
  Report Type: 
  Country: None (occurrence: None)
  Receive Date: 20111212
  Receipt Date: 20111201
  Transmission Date: 20120403
  Serious: Yes (Hospitalization)
  Sender: FDA-Public Use
  Company Number: US-BAYER-2011-089478

PATIENT
  Age: 28 Year
  Sex: Female
  Weight: 79.365 kg

DRUGS (4)
  1. DROSPIRENONE AND ETHINYL ESTRADIOL [Suspect]
     Indication: CONTRACEPTION
     Dosage: UNK
     Route: 048
     Dates: start: 20050401, end: 20060101
  2. YASMIN [Suspect]
     Dosage: UNK
     Route: 048
     Dates: start: 20081101, end: 20090701
  3. YASMIN [Suspect]
     Indication: CONTRACEPTION
     Dosage: UNK
     Route: 048
     Dates: start: 20050401, end: 20060101
  4. DROSPIRENONE AND ETHINYL ESTRADIOL [Suspect]
     Dosage: UNK
     Route: 048
     Dates: start: 20081101, end: 20090701

REACTIONS (7)
  - PULMONARY EMBOLISM [None]
  - CHEST PAIN [None]
  - PAINFUL RESPIRATION [None]
  - PNEUMOTHORAX [None]
  - PAIN [None]
  - ATELECTASIS [None]
  - DYSPNOEA [None]
